FAERS Safety Report 20362852 (Version 2)
Quarter: 2022Q1

REPORT INFORMATION
  Report Type: Spontaneous
  Country: JP (occurrence: None)
  Receive Date: 20220121
  Receipt Date: 20220201
  Transmission Date: 20220423
  Serious: Yes (Hospitalization)
  Sender: FDA-Public Use
  Company Number: JP-Fresenius Kabi-FK202200767

PATIENT
  Age: 51 Year
  Sex: Male
  Weight: 83.1 kg

DRUGS (3)
  1. ROCURONIUM [Suspect]
     Active Substance: ROCURONIUM BROMIDE
     Indication: Hypotonia
     Route: 065
  2. FENTANYL [Concomitant]
     Active Substance: FENTANYL
     Indication: Product used for unknown indication
     Route: 065
  3. MIDAZOLAM [Concomitant]
     Active Substance: MIDAZOLAM
     Indication: Product used for unknown indication
     Route: 065

REACTIONS (1)
  - Rhabdomyolysis [Unknown]
